FAERS Safety Report 26126308 (Version 1)
Quarter: 2025Q4

REPORT INFORMATION
  Report Type: Spontaneous
  Country: US (occurrence: US)
  Receive Date: 20251205
  Receipt Date: 20251205
  Transmission Date: 20260118
  Serious: Yes (Hospitalization)
  Sender: BAXTER
  Company Number: US-BAXTER-2025BAX025282

PATIENT
  Sex: Male

DRUGS (2)
  1. VANCOMYCIN HYDROCHLORIDE [Suspect]
     Active Substance: VANCOMYCIN HYDROCHLORIDE
     Dosage: 1 G
     Route: 042
     Dates: start: 20251011, end: 20251011
  2. LACTATED RINGERS AND DEXTROSE SOLUTION [Suspect]
     Active Substance: CALCIUM CHLORIDE\DEXTROSE MONOHYDRATE\POTASSIUM CHLORIDE\SODIUM CHLORIDE\SODIUM LACTATE
     Dosage: UNK
     Route: 042
     Dates: start: 20251011, end: 20251011

REACTIONS (1)
  - Infusion site extravasation [Unknown]
